FAERS Safety Report 15357728 (Version 2)
Quarter: 2019Q1

REPORT INFORMATION
  Report Type: Report from Study
  Country: US (occurrence: US)
  Receive Date: 20180906
  Receipt Date: 20190227
  Transmission Date: 20190417
  Serious: Yes (Hospitalization, Other)
  Sender: FDA-Public Use
  Company Number: US-ACTELION-A-NJ2017-151838

PATIENT
  Sex: Male
  Weight: 88.44 kg

DRUGS (5)
  1. OPSUMIT [Suspect]
     Active Substance: MACITENTAN
     Indication: PULMONARY HYPERTENSION
     Dosage: 10 MG, QD
     Route: 048
     Dates: start: 20150615
  2. ADCIRCA [Concomitant]
     Active Substance: TADALAFIL
  3. METOPROLOL. [Concomitant]
     Active Substance: METOPROLOL
  4. PRESERVISION [Concomitant]
     Active Substance: MINERALS\VITAMINS
  5. GLIPIZIDE. [Concomitant]
     Active Substance: GLIPIZIDE

REACTIONS (7)
  - Hospitalisation [Unknown]
  - Nasopharyngitis [Unknown]
  - Hypoacusis [Unknown]
  - Hospice care [Unknown]
  - Visual impairment [Unknown]
  - Dyspnoea [Unknown]
  - End stage renal disease [Unknown]
